FAERS Safety Report 16374047 (Version 1)
Quarter: 2019Q2

REPORT INFORMATION
  Report Type: Spontaneous
  Country: HR (occurrence: HR)
  Receive Date: 20190530
  Receipt Date: 20190530
  Transmission Date: 20190711
  Serious: Yes (Hospitalization, Other)
  Sender: FDA-Public Use
  Company Number: HR-BAUSCH-BL-2019-015356

PATIENT
  Sex: Female

DRUGS (6)
  1. DEXAMETHASONE. [Suspect]
     Active Substance: DEXAMETHASONE
     Dosage: LEN-DEX
     Route: 065
     Dates: start: 201602
  2. POMALIDOMIDE [Suspect]
     Active Substance: POMALIDOMIDE
     Route: 048
     Dates: start: 201810
  3. DEXAMETHASONE. [Suspect]
     Active Substance: DEXAMETHASONE
     Dosage: POM-DEX
     Route: 065
     Dates: start: 201810
  4. DEXAMETHASONE. [Suspect]
     Active Substance: DEXAMETHASONE
     Indication: PLASMA CELL MYELOMA
     Dosage: VAD
     Route: 065
     Dates: start: 201406
  5. DEXAMETHASONE. [Suspect]
     Active Substance: DEXAMETHASONE
     Indication: PLASMA CELL MYELOMA
     Dosage: VCD
     Route: 065
     Dates: start: 201505
  6. POMALIDOMIDE [Suspect]
     Active Substance: POMALIDOMIDE
     Indication: PLASMA CELL MYELOMA
     Dosage: DOSE REDUCTION
     Route: 048

REACTIONS (7)
  - Light chain analysis increased [Unknown]
  - Febrile neutropenia [Unknown]
  - Anaemia [Unknown]
  - Haematoma [Unknown]
  - Neutropenia [Unknown]
  - Proteinuria [Unknown]
  - Thrombocytopenia [Unknown]
